FAERS Safety Report 25114099 (Version 7)
Quarter: 2025Q2

REPORT INFORMATION
  Report Type: Spontaneous
  Country: BR (occurrence: BR)
  Receive Date: 20250324
  Receipt Date: 20250604
  Transmission Date: 20250717
  Serious: Yes (Other)
  Sender: NOVARTIS
  Company Number: BR-002147023-NVSC2025BR046977

PATIENT
  Age: 74 Year
  Sex: Female
  Weight: 45 kg

DRUGS (3)
  1. DIOVAN [Suspect]
     Active Substance: VALSARTAN
     Indication: Product used for unknown indication
     Route: 065
  2. DIOVAN [Suspect]
     Active Substance: VALSARTAN
     Route: 065
  3. DIOVAN [Suspect]
     Active Substance: VALSARTAN
     Route: 065

REACTIONS (8)
  - Arrhythmia [Recovering/Resolving]
  - Hypertension [Recovered/Resolved]
  - Fear of death [Unknown]
  - Intentional overdose [Unknown]
  - Wrong technique in product usage process [Recovered/Resolved]
  - Product storage error [Unknown]
  - Suspected counterfeit product [Unknown]
  - Drug ineffective [Recovered/Resolved]

NARRATIVE: CASE EVENT DATE: 20250316
